FAERS Safety Report 7421966-1 (Version None)
Quarter: 2011Q2

REPORT INFORMATION
  Report Type: 
  Country: None (occurrence: None)
  Receive Date: 20110418
  Receipt Date: 20110404
  Transmission Date: 20111010
  Serious: Yes (Other)
  Sender: FDA-Public Use
  Company Number: US-CELGENEUS-163-21880-10102720

PATIENT
  Sex: Female
  Weight: 91.8 kg

DRUGS (2)
  1. REVLIMID [Suspect]
     Dosage: 10 MILLIGRAM
     Route: 048
     Dates: start: 20110110
  2. REVLIMID [Suspect]
     Dosage: 10 MILLIGRAM
     Route: 048
     Dates: start: 20100727, end: 20101101

REACTIONS (4)
  - DIARRHOEA [None]
  - VAGINAL HAEMORRHAGE [None]
  - THROMBOCYTOPENIA [None]
  - JOINT SWELLING [None]
